FAERS Safety Report 4420883-9 (Version None)
Quarter: 2004Q3

REPORT INFORMATION
  Report Type: 
  Country: None (occurrence: None)
  Receive Date: 20040809
  Receipt Date: 20030130
  Transmission Date: 20050211
  Serious: Yes (Hospitalization, Disabling, Other)
  Sender: FDA-Public Use
  Company Number: US-MERCK-0302USA00098

PATIENT
  Age: 77 Year
  Sex: Male
  Weight: 90 kg

DRUGS (24)
  1. AMIODARONE [Concomitant]
     Route: 065
  2. IMURAN [Concomitant]
     Route: 065
  3. CHLORACON [Concomitant]
     Route: 065
  4. CELEBREX [Concomitant]
     Route: 065
  5. TAGAMET [Concomitant]
     Route: 065
  6. CYANOCOBALAMIN [Concomitant]
     Route: 065
  7. LANOXIN [Concomitant]
     Route: 065
  8. TIAZAC [Concomitant]
     Route: 065
  9. CARTIA (DILTIAZEM HYDROCHLORIDE) [Concomitant]
     Route: 065
  10. FOLIC ACID [Concomitant]
     Route: 065
  11. LASIX [Concomitant]
     Route: 065
  12. GLIPIZIDE [Concomitant]
     Route: 065
  13. MOTRIN [Concomitant]
     Route: 065
     Dates: start: 19900101, end: 20010101
  14. INSULIN [Concomitant]
     Route: 065
  15. INSULIN HUMAN, ISOPHANE [Concomitant]
     Route: 065
  16. IMDUR [Concomitant]
     Route: 065
  17. METHOTREXATE [Concomitant]
     Route: 065
     Dates: start: 20010205
  18. NIACIN [Concomitant]
     Route: 065
  19. POTASSIUM (UNSPECIFIED) [Concomitant]
     Route: 065
  20. PREDNISONE [Concomitant]
     Route: 065
  21. VIOXX [Suspect]
     Indication: RHEUMATOID ARTHRITIS
     Route: 048
     Dates: start: 19990101, end: 20010910
  22. VIOXX [Suspect]
     Indication: OSTEOARTHRITIS
     Route: 048
     Dates: start: 19990101, end: 20010910
  23. FLOMAX [Concomitant]
     Route: 065
     Dates: start: 19990101
  24. VITAMIN E [Concomitant]
     Route: 065

REACTIONS (43)
  - ANAEMIA [None]
  - ANGINA PECTORIS [None]
  - ANGINA UNSTABLE [None]
  - AORTIC ANEURYSM [None]
  - ARRHYTHMIA [None]
  - ARTHRALGIA [None]
  - ASTHENIA [None]
  - ATRIAL FIBRILLATION [None]
  - BASAL CELL CARCINOMA [None]
  - BENIGN PROSTATIC HYPERPLASIA [None]
  - CARDIAC FAILURE CONGESTIVE [None]
  - CEREBROVASCULAR ACCIDENT [None]
  - CHEST PAIN [None]
  - CLOSED HEAD INJURY [None]
  - CORONARY ARTERY DISEASE [None]
  - DEHYDRATION [None]
  - DIARRHOEA [None]
  - DIZZINESS [None]
  - DRUG TOXICITY [None]
  - EMOTIONAL DISTRESS [None]
  - EMPHYSEMA [None]
  - FALL [None]
  - FEELING HOT AND COLD [None]
  - HEART RATE IRREGULAR [None]
  - HYPOACUSIS [None]
  - LEUKOCYTOSIS [None]
  - LOBAR PNEUMONIA [None]
  - MYOCARDIAL INFARCTION [None]
  - NAUSEA [None]
  - NERVE DEGENERATION [None]
  - OESOPHAGEAL DISORDER [None]
  - ORAL CANDIDIASIS [None]
  - PAIN [None]
  - POLYMYALGIA RHEUMATICA [None]
  - PYREXIA [None]
  - REFRACTORY ANAEMIA [None]
  - SKIN ULCER [None]
  - SLEEP APNOEA SYNDROME [None]
  - TEMPORAL ARTERITIS [None]
  - THROMBOSIS [None]
  - URINARY TRACT INFECTION [None]
  - VOMITING [None]
  - WANDERING PACEMAKER [None]
